FAERS Safety Report 12060788 (Version 2)
Quarter: 2016Q1

REPORT INFORMATION
  Report Type: Spontaneous
  Country: GB (occurrence: GB)
  Receive Date: 20160210
  Receipt Date: 20160325
  Transmission Date: 20160526
  Serious: Yes (Other)
  Sender: FDA-Public Use
  Company Number: GB-PFIZER INC-2016028858

PATIENT
  Age: 22 Year
  Sex: Female
  Weight: 64.1 kg

DRUGS (6)
  1. GYNO-DAKTARIN [Concomitant]
     Active Substance: MICONAZOLE
     Dosage: UNK
  2. FLUCONAZOLE. [Suspect]
     Active Substance: FLUCONAZOLE
     Indication: VULVOVAGINAL CANDIDIASIS
     Dosage: 150 MG, 1 CAPSULE EVERY THREE DAYS FOR 3 DOSES
     Route: 048
     Dates: start: 20160105
  3. LIDOCAINE. [Concomitant]
     Active Substance: LIDOCAINE
     Dosage: UNK
  4. FLUCONAZOLE. [Suspect]
     Active Substance: FLUCONAZOLE
     Dosage: 150 MG, 1 CAPSULE WEEKLY FOR A MONTH
     Route: 048
     Dates: end: 20160113
  5. LAMOTRIGINE. [Concomitant]
     Active Substance: LAMOTRIGINE
     Indication: EPILEPSY
     Dosage: 100 MG, 2X/DAY
     Route: 048
     Dates: start: 20141016
  6. FLUCLOXACILLIN [Concomitant]
     Active Substance: FLUCLOXACILLIN
     Indication: BACTERIAL INFECTION
     Dosage: 1000 MG, 4X/DAY
     Route: 048
     Dates: start: 20160109, end: 20160113

REACTIONS (5)
  - Fall [Recovered/Resolved]
  - Headache [Recovered/Resolved]
  - Seizure [Recovered/Resolved]
  - Vomiting projectile [Recovered/Resolved]
  - Dizziness [Recovered/Resolved]

NARRATIVE: CASE EVENT DATE: 201601
